FAERS Safety Report 8353418-9 (Version None)
Quarter: 2012Q2

REPORT INFORMATION
  Report Type: 
  Country: None (occurrence: None)
  Receive Date: 20120511
  Receipt Date: 20110824
  Transmission Date: 20120825
  Serious: No
  Sender: FDA-Public Use
  Company Number: US-GLAXOSMITHKLINE-A0805988A

PATIENT
  Age: 59 Year
  Sex: Female

DRUGS (2)
  1. XELODA [Concomitant]
  2. TYKERB [Suspect]
     Indication: PRODUCT USED FOR UNKNOWN INDICATION
     Dates: start: 20090731

REACTIONS (5)
  - DRUG DISPENSING ERROR [None]
  - PAIN IN EXTREMITY [None]
  - ERYTHEMA [None]
  - FATIGUE [None]
  - DISEASE PROGRESSION [None]
